FAERS Safety Report 26012615 (Version 1)
Quarter: 2025Q4

REPORT INFORMATION
  Report Type: Spontaneous
  Country: EU (occurrence: EU)
  Receive Date: 20251107
  Receipt Date: 20251107
  Transmission Date: 20260117
  Serious: Yes (Other)
  Sender: EXELIXIS
  Company Number: EU-IPSEN Group, Research and Development-2025-13359

PATIENT
  Age: 56 Year
  Sex: Female
  Weight: 108 kg

DRUGS (6)
  1. CABOMETYX [Suspect]
     Active Substance: CABOZANTINIB S-MALATE
     Indication: Renal cancer
     Dosage: 60 MG, QD
     Route: 048
     Dates: end: 20241023
  2. CABOMETYX [Suspect]
     Active Substance: CABOZANTINIB S-MALATE
     Dosage: 20 MG, EVERY 2 DAYS
     Route: 048
     Dates: start: 20250430, end: 20250827
  3. CABOMETYX [Suspect]
     Active Substance: CABOZANTINIB S-MALATE
     Dosage: 40 MG, QD
     Route: 048
     Dates: start: 20241207, end: 20241219
  4. CABOMETYX [Suspect]
     Active Substance: CABOZANTINIB S-MALATE
     Dosage: 20 MG, QD
     Route: 048
     Dates: start: 20250329, end: 20250407
  5. CABOMETYX [Suspect]
     Active Substance: CABOZANTINIB S-MALATE
     Dosage: 40 MG, QD
     Route: 048
     Dates: start: 20250311
  6. NIVOLUMAB [Suspect]
     Active Substance: NIVOLUMAB
     Indication: Renal cancer
     Dosage: 240 MG
     Dates: start: 20241023, end: 20241219

REACTIONS (3)
  - Hepatic cytolysis [Recovering/Resolving]
  - Asthenia [Unknown]
  - Off label use [Unknown]

NARRATIVE: CASE EVENT DATE: 20241215
